FAERS Safety Report 24266284 (Version 1)
Quarter: 2024Q3

REPORT INFORMATION
  Report Type: Spontaneous
  Country: US (occurrence: US)
  Receive Date: 20240830
  Receipt Date: 20240830
  Transmission Date: 20241017
  Serious: Yes (Hospitalization)
  Sender: BRISTOL MYERS SQUIBB
  Company Number: US-BRISTOL-MYERS SQUIBB COMPANY-2024-136331

PATIENT
  Age: 49 Year
  Sex: Male

DRUGS (4)
  1. THALOMID [Suspect]
     Active Substance: THALIDOMIDE
     Indication: Colon cancer
     Route: 048
     Dates: start: 202408, end: 202408
  2. THALOMID [Suspect]
     Active Substance: THALIDOMIDE
     Indication: Vitamin D deficiency
  3. THALOMID [Suspect]
     Active Substance: THALIDOMIDE
     Indication: Angiopathy
  4. THALOMID [Suspect]
     Active Substance: THALIDOMIDE
     Indication: Melaena

REACTIONS (2)
  - Hospitalisation [Unknown]
  - Off label use [Unknown]

NARRATIVE: CASE EVENT DATE: 20240801
